FAERS Safety Report 25771752 (Version 1)
Quarter: 2025Q3

REPORT INFORMATION
  Report Type: Spontaneous
  Country: US (occurrence: US)
  Receive Date: 20250908
  Receipt Date: 20250908
  Transmission Date: 20251020
  Serious: No
  Sender: PHARMACOSMOS A/S
  Company Number: US-NEBO-705649

PATIENT

DRUGS (1)
  1. TRILACICLIB [Suspect]
     Active Substance: TRILACICLIB
     Indication: Product used for unknown indication

REACTIONS (2)
  - Product storage error [Recovered/Resolved]
  - Intercepted medication error [Recovered/Resolved]

NARRATIVE: CASE EVENT DATE: 20250730
